FAERS Safety Report 11345090 (Version 1)
Quarter: 2015Q3

REPORT INFORMATION
  Report Type: Spontaneous
  Country: US (occurrence: US)
  Receive Date: 20150806
  Receipt Date: 20150806
  Transmission Date: 20151125
  Serious: Yes (Other)
  Sender: FDA-Public Use
  Company Number: US-TEVA-584021USA

PATIENT
  Age: 77 Year
  Sex: Female

DRUGS (2)
  1. SOTALOL. [Suspect]
     Active Substance: SOTALOL
     Indication: VENTRICULAR ARRHYTHMIA
     Dates: start: 2000
  2. LEVOTHYROXINE. [Suspect]
     Active Substance: LEVOTHYROXINE
     Route: 065
     Dates: end: 20150723

REACTIONS (9)
  - Atrial fibrillation [Unknown]
  - Alopecia [Recovering/Resolving]
  - Vision blurred [Recovered/Resolved]
  - Muscular weakness [Recovering/Resolving]
  - Gastrointestinal disorder [Recovering/Resolving]
  - Pain [Recovered/Resolved]
  - Weight increased [Unknown]
  - Abdominal distension [Recovering/Resolving]
  - Fatigue [Unknown]
